FAERS Safety Report 5250347-4 (Version None)
Quarter: 2007Q1

REPORT INFORMATION
  Report Type: 
  Country: None (occurrence: None)
  Receive Date: 20070228
  Receipt Date: 20060417
  Transmission Date: 20070707
  Serious: No
  Sender: FDA-Public Use
  Company Number: US-GLAXOSMITHKLINE-A0599777A

PATIENT
  Age: 88 Year
  Sex: Male
  Weight: 64 kg

DRUGS (2)
  1. LAMICTAL [Suspect]
     Route: 048
     Dates: end: 20060322
  2. DILANTIN [Concomitant]
     Dosage: 260MG AT NIGHT

REACTIONS (2)
  - BLOOD GLUCOSE INCREASED [None]
  - DECREASED APPETITE [None]
